FAERS Safety Report 21500988 (Version 2)
Quarter: 2023Q1

REPORT INFORMATION
  Report Type: Report from Study
  Country: US (occurrence: US)
  Receive Date: 20221025
  Receipt Date: 20230330
  Transmission Date: 20230417
  Serious: No
  Sender: FDA-Public Use
  Company Number: US-ABBVIE-4174624

PATIENT
  Sex: Female

DRUGS (4)
  1. RINVOQ [Suspect]
     Active Substance: UPADACITINIB
     Indication: Dermatitis
     Dosage: FIRST ADMIN DATE:  22 APR 2022, LAST ADMIN DATE: 2022, FREQUENCY: ONE TABLET DAILY, FORM STRENGTH...
     Route: 048
  2. RINVOQ [Suspect]
     Active Substance: UPADACITINIB
     Indication: Dermatitis
     Dosage: FIRST ADMIN DATE: 2022, FREQUENCY: ONE TABLET DAILY, FORM STRENGTH: 15 MILLIGRAM
     Route: 048
  3. FENOFIBRATE [Concomitant]
     Active Substance: FENOFIBRATE
     Indication: Product used for unknown indication
     Route: 048
  4. FISH OIL [Concomitant]
     Active Substance: FISH OIL
     Indication: Product used for unknown indication
     Route: 048

REACTIONS (7)
  - Pruritus [Unknown]
  - Blister [Unknown]
  - Skin disorder [Unknown]
  - Hypersensitivity [Unknown]
  - Blood triglycerides increased [Recovering/Resolving]
  - Nasal congestion [Unknown]
  - Inflammation [Unknown]

NARRATIVE: CASE EVENT DATE: 20220101
